FAERS Safety Report 5476729-3 (Version None)
Quarter: 2007Q4

REPORT INFORMATION
  Report Type: 
  Country: None (occurrence: None)
  Receive Date: 20071003
  Receipt Date: 20071003
  Transmission Date: 20080405
  Serious: Yes (Other)
  Sender: FDA-Public Use
  Company Number: None

PATIENT
  Age: 50 Year
  Sex: Female
  Weight: 81.6475 kg

DRUGS (1)
  1. COREG [Suspect]
     Indication: CARDIAC FAILURE
     Dosage: 6.25 MG 2X DAY -} 3X DAY -}2X DAY ORAL
     Route: 048
     Dates: start: 20070622

REACTIONS (5)
  - HYPOAESTHESIA [None]
  - LIMB DISCOMFORT [None]
  - PAIN IN EXTREMITY [None]
  - PARAESTHESIA [None]
  - SWELLING [None]
